FAERS Safety Report 7530293-3 (Version None)
Quarter: 2011Q2

REPORT INFORMATION
  Report Type: 
  Country: None (occurrence: None)
  Receive Date: 20110531
  Receipt Date: 20110517
  Transmission Date: 20111010
  Serious: Yes (Hospitalization)
  Sender: FDA-Public Use
  Company Number: DSJ-2011-09685

PATIENT
  Sex: Female

DRUGS (4)
  1. PAROXETINE HCL [Concomitant]
  2. AMLODIPINE BESYLATE AND OLMESARTAN MEDOXOMIL [Suspect]
     Indication: HYPERTENSION
     Dosage: 40/5; 20//2.5 MG (1 IN 1 D), PER ORAL
     Route: 048
     Dates: start: 20110413
  3. AMLODIPINE BESYLATE AND OLMESARTAN MEDOXOMIL [Suspect]
     Indication: HYPERTENSION
     Dosage: 40/5; 20//2.5 MG (1 IN 1 D), PER ORAL
     Route: 048
     Dates: start: 20101201, end: 20110412
  4. CLONAZEPAM [Concomitant]

REACTIONS (2)
  - HYPOTENSION [None]
  - HYSTERECTOMY [None]
